FAERS Safety Report 9110467 (Version 1)
Quarter: 2013Q1

REPORT INFORMATION
  Report Type: Spontaneous
  Country: US (occurrence: US)
  Receive Date: 20130219
  Receipt Date: 20130219
  Transmission Date: 20140127
  Serious: Yes (Other)
  Sender: FDA-Public Use
  Company Number: US-BRACCO-008894

PATIENT
  Age: 75 Year
  Sex: Male
  Weight: 97.4 kg

DRUGS (12)
  1. ASPIRIN [Concomitant]
  2. VITAMIN D [Concomitant]
  3. DOXYCYCLINE HYCLATE [Concomitant]
  4. GLIPIZIDE [Concomitant]
  5. LISINOPRIL [Concomitant]
  6. METFORMIN HCL [Concomitant]
  7. SIMVASTATIN [Concomitant]
  8. CLOTRIMAZOLE [Concomitant]
  9. ISOVUE 370 [Suspect]
     Indication: CATHETERISATION CARDIAC
     Route: 013
     Dates: start: 20121120, end: 20121120
  10. ISOVUE 370 [Suspect]
     Indication: PREOPERATIVE CARE
     Route: 013
     Dates: start: 20121120, end: 20121120
  11. IBUPROFEN [Concomitant]
  12. TOBRAMYCIN [Concomitant]

REACTIONS (4)
  - Blood pressure decreased [Unknown]
  - Oxygen saturation decreased [Unknown]
  - Urticaria [Unknown]
  - Flushing [Unknown]
